FAERS Safety Report 25671655 (Version 1)
Quarter: 2025Q3

REPORT INFORMATION
  Report Type: Spontaneous
  Country: CN (occurrence: CN)
  Receive Date: 20250812
  Receipt Date: 20250812
  Transmission Date: 20251020
  Serious: Yes (Hospitalization)
  Sender: PFIZER
  Company Number: CN-PFIZER INC-PV202500096597

PATIENT
  Age: 7 Year
  Sex: Male
  Weight: 30.5 kg

DRUGS (1)
  1. LORBRENA [Suspect]
     Active Substance: LORLATINIB
     Indication: Inflammatory myofibroblastic tumour
     Dosage: 100 MG, 1X/DAY
     Route: 048
     Dates: start: 20250303, end: 20250705

REACTIONS (5)
  - Lipids increased [Recovering/Resolving]
  - Haematuria [Recovering/Resolving]
  - Weight increased [Recovering/Resolving]
  - Off label use [Unknown]
  - Off label use [Unknown]

NARRATIVE: CASE EVENT DATE: 20250303
